FAERS Safety Report 7757914-4 (Version None)
Quarter: 2011Q3

REPORT INFORMATION
  Report Type: 
  Country: None (occurrence: None)
  Receive Date: 20110918
  Receipt Date: 20101208
  Transmission Date: 20111222
  Serious: Yes (Other)
  Sender: FDA-Public Use
  Company Number: PHHY2010DE92224

PATIENT
  Age: 43 Year
  Sex: Female

DRUGS (6)
  1. PAMIDRONATE DISODIUM [Suspect]
     Dosage: UNK UKN, UNK
     Route: 042
  2. ZOLEDRONIC [Suspect]
     Dosage: UNK UKN, UNK
     Route: 042
  3. MELPHALAN HYDROCHLORIDE [Concomitant]
  4. EPIRUBICIN [Concomitant]
  5. PACLITAXEL [Concomitant]
  6. CYCLOPHOSPHAMIDE [Concomitant]

REACTIONS (1)
  - OSTEONECROSIS OF JAW [None]
